FAERS Safety Report 9116307 (Version 1)
Quarter: 2013Q1

REPORT INFORMATION
  Report Type: Spontaneous
  Country: FR (occurrence: FR)
  Receive Date: 20130225
  Receipt Date: 20130225
  Transmission Date: 20140127
  Serious: Yes (Hospitalization, Other)
  Sender: FDA-Public Use
  Company Number: FR-ALLERGAN-1302737US

PATIENT
  Age: 71 Year
  Sex: Female

DRUGS (8)
  1. TROSPIUM CHLORIDE [Suspect]
     Indication: URINARY INCONTINENCE
     Dosage: 2 DF, QD
     Route: 048
     Dates: start: 20110525, end: 20120113
  2. LEVOTHYROX [Concomitant]
     Indication: PRODUCT USED FOR UNKNOWN INDICATION
     Dosage: 100 ?G, UNK
  3. COSOPT [Concomitant]
     Indication: PRODUCT USED FOR UNKNOWN INDICATION
  4. ZOCOR [Concomitant]
     Indication: PRODUCT USED FOR UNKNOWN INDICATION
     Dosage: 20 MG, UNK
  5. VEINAMITOL [Concomitant]
  6. OROCAL D3 [Concomitant]
  7. DOLIPRANE [Concomitant]
  8. IMOVANE [Concomitant]

REACTIONS (3)
  - Renal failure [Unknown]
  - Urinary retention [Unknown]
  - Urinary tract infection [Unknown]
